FAERS Safety Report 5778365-8 (Version None)
Quarter: 2008Q2

REPORT INFORMATION
  Report Type: 
  Country: None (occurrence: None)
  Receive Date: 20080619
  Receipt Date: 20080613
  Transmission Date: 20081010
  Serious: Yes (Death, Hospitalization, Other)
  Sender: FDA-Public Use
  Company Number: US-BAYER-200813061NA

PATIENT
  Age: 67 Year
  Sex: Female
  Weight: 79 kg

DRUGS (17)
  1. CAMPATH [Suspect]
     Indication: CHRONIC LYMPHOCYTIC LEUKAEMIA
     Dosage: TOTAL DAILY DOSE: 30 MG
     Dates: start: 20071112, end: 20080130
  2. TYLENOL [Concomitant]
     Indication: PREMEDICATION
  3. BENADRYL [Concomitant]
     Indication: PREMEDICATION
  4. BACTRIM [Concomitant]
     Indication: INFECTION PROPHYLAXIS
  5. RED BLOOD CELLS [Concomitant]
     Indication: ANAEMIA
     Dosage: AS USED: 2 U
     Route: 042
     Dates: start: 20080121, end: 20080121
  6. METFORMIN [Concomitant]
     Dosage: TOTAL DAILY DOSE: 2000 MG
  7. DIOVAN [Concomitant]
     Dosage: TOTAL DAILY DOSE: 80 MG
     Route: 048
  8. PROCRIT [Concomitant]
  9. FAMCICLOVIR [Concomitant]
     Dosage: TOTAL DAILY DOSE: 500 MG
  10. LIPITOR [Concomitant]
     Dosage: TOTAL DAILY DOSE: 20 MG
  11. ACIPHEX [Concomitant]
     Dosage: TOTAL DAILY DOSE: 20 MG
  12. SENEKOT S [Concomitant]
     Route: 048
  13. LEVOTHYROXINE SODIUM [Concomitant]
     Dosage: TOTAL DAILY DOSE: 225 ?G
  14. EYECAPS [Concomitant]
     Route: 048
  15. ASPIRIN [Concomitant]
     Dosage: TOTAL DAILY DOSE: 81 MG
  16. GLUCOSAMINE CHONDROITIN [Concomitant]
     Route: 048
  17. MULTI-VITAMIN [Concomitant]

REACTIONS (11)
  - ALOPECIA [None]
  - ANAEMIA [None]
  - ARTHRITIS BACTERIAL [None]
  - ASTHENIA [None]
  - CAPILLARY LEAK SYNDROME [None]
  - CHRONIC LYMPHOCYTIC LEUKAEMIA REFRACTORY [None]
  - DYSPNOEA [None]
  - FLUID RETENTION [None]
  - LYMPHOCYTIC LYMPHOMA [None]
  - OEDEMA PERIPHERAL [None]
  - SEPSIS [None]
